FAERS Safety Report 16068514 (Version 1)
Quarter: 2019Q1

REPORT INFORMATION
  Report Type: Spontaneous
  Country: ES (occurrence: ES)
  Receive Date: 20190313
  Receipt Date: 20190313
  Transmission Date: 20190418
  Serious: Yes (Life-Threatening)
  Sender: FDA-Public Use
  Company Number: ES-TEVA-2019-ES-1022464

PATIENT
  Age: 76 Year
  Sex: Male
  Weight: 74 kg

DRUGS (6)
  1. BRILIQUE [Suspect]
     Active Substance: TICAGRELOR
     Indication: ANEURYSM
     Dosage: 90MG/12H
     Route: 048
     Dates: start: 20160701, end: 20181201
  2. ATORVASTATINA (7400A) [Suspect]
     Active Substance: ATORVASTATIN
     Indication: ANEURYSM
     Dosage: 80 MILLIGRAM DAILY;
     Route: 048
     Dates: start: 20160601
  3. RAMIPRIL (2497A) [Suspect]
     Active Substance: RAMIPRIL
     Indication: ANEURYSM
     Dosage: 5 MILLIGRAM DAILY;
     Route: 048
     Dates: start: 20160601
  4. OMEPRAZOL, 20 MG, COMPRIMIDO [Suspect]
     Active Substance: OMEPRAZOLE
     Indication: PROPHYLAXIS AGAINST GASTROINTESTINAL ULCER
     Dosage: 20 MILLIGRAM DAILY;
     Route: 048
     Dates: start: 20160101
  5. ADIRO [Suspect]
     Active Substance: ASPIRIN
     Indication: PLATELET AGGREGATION
     Dosage: 100 MILLIGRAM DAILY;
     Route: 048
     Dates: start: 20160101
  6. BISOPROLOL [Suspect]
     Active Substance: BISOPROLOL
     Indication: ANEURYSM
     Dosage: 2.5 MILLIGRAM DAILY;
     Route: 048
     Dates: start: 20160601

REACTIONS (1)
  - Prostate cancer [Not Recovered/Not Resolved]

NARRATIVE: CASE EVENT DATE: 20180601
